FAERS Safety Report 8272165 (Version 2)
Quarter: 2013Q1

REPORT INFORMATION
  Report Type: Spontaneous
  Country: JP (occurrence: JP)
  Receive Date: 20111202
  Receipt Date: 20130121
  Transmission Date: 20140127
  Serious: Yes (Hospitalization, Other)
  Sender: FDA-Public Use
  Company Number: JP-JNJFOC-20111111023

PATIENT
  Age: 60 Year
  Sex: Male

DRUGS (12)
  1. RISPERDAL [Suspect]
     Indication: SCHIZOPHRENIA
     Route: 048
  2. RISPERDAL [Suspect]
     Indication: SCHIZOPHRENIA
     Route: 048
  3. RISPERDAL [Suspect]
     Indication: SCHIZOPHRENIA
     Route: 048
  4. RISPERDAL [Suspect]
     Indication: SCHIZOPHRENIA
     Route: 048
  5. RISPERIDONE [Suspect]
     Indication: SCHIZOPHRENIA
     Route: 030
  6. RISPERIDONE [Suspect]
     Indication: SCHIZOPHRENIA
     Route: 030
  7. RISPERIDONE [Suspect]
     Indication: SCHIZOPHRENIA
     Route: 030
  8. RISPERIDONE [Suspect]
     Indication: SCHIZOPHRENIA
     Dosage: P.R.N
     Route: 048
  9. TRIHEXYPHENIDYL [Suspect]
     Indication: PRODUCT USED FOR UNKNOWN INDICATION
     Route: 065
  10. TRIHEXYPHENIDYL [Suspect]
     Indication: PRODUCT USED FOR UNKNOWN INDICATION
     Route: 065
  11. FLUNITRAZEPAM [Concomitant]
     Route: 065
  12. ESTAZOLAM [Concomitant]
     Route: 065

REACTIONS (8)
  - Depressive symptom [Recovering/Resolving]
  - Abulia [Recovering/Resolving]
  - Treatment noncompliance [Unknown]
  - Dizziness [Recovering/Resolving]
  - Salivary hypersecretion [Recovering/Resolving]
  - Tremor [Recovering/Resolving]
  - Masked facies [Recovering/Resolving]
  - Irritability [Recovering/Resolving]
